FAERS Safety Report 22317901 (Version 1)
Quarter: 2023Q2

REPORT INFORMATION
  Report Type: Spontaneous
  Country: US (occurrence: US)
  Receive Date: 20230515
  Receipt Date: 20230515
  Transmission Date: 20230721
  Serious: No
  Sender: FDA-Public Use
  Company Number: US-Accord-305815

PATIENT
  Sex: Male
  Weight: 73.48 kg

DRUGS (1)
  1. LEVOTHYROXINE [Suspect]
     Active Substance: LEVOTHYROXINE
     Indication: Hypothyroidism
     Dosage: WILL INCREASE DOSE TO 150MCG, ORAL, DAILY, ON 18-MAR-2023
     Route: 048
     Dates: start: 202212

REACTIONS (1)
  - Blood thyroid stimulating hormone increased [Unknown]
